FAERS Safety Report 6043835-4 (Version None)
Quarter: 2009Q1

REPORT INFORMATION
  Report Type: 
  Country: None (occurrence: None)
  Receive Date: 20090120
  Receipt Date: 20090108
  Transmission Date: 20090719
  Serious: Yes (Death)
  Sender: FDA-Public Use
  Company Number: GB-AMGEN-US327762

PATIENT
  Sex: Female
  Weight: 78 kg

DRUGS (7)
  1. ENBREL [Suspect]
     Indication: PSORIATIC ARTHROPATHY
     Route: 058
     Dates: start: 20041119
  2. ATENOLOL [Concomitant]
     Dosage: UNKNOWN
  3. SERTRALINE [Concomitant]
     Dosage: UNKNOWN
  4. LANSOPRAZOLE [Concomitant]
     Dosage: UNKNOWN
  5. NAPROXEN [Concomitant]
     Dosage: UNKNOWN
  6. PREDNISOLONE [Concomitant]
     Dosage: UNKNOWN
  7. DIAZEPAM [Concomitant]
     Dosage: UNKNOWN

REACTIONS (3)
  - HYPOTENSION [None]
  - PNEUMONIA [None]
  - RENAL FAILURE [None]
